FAERS Safety Report 18505928 (Version 2)
Quarter: 2020Q4

REPORT INFORMATION
  Report Type: Report from Study
  Country: US (occurrence: US)
  Receive Date: 20201116
  Receipt Date: 20201230
  Transmission Date: 20210114
  Serious: Yes (Death, Other)
  Sender: FDA-Public Use
  Company Number: NVSC2020US303469

PATIENT
  Sex: Male
  Weight: 88.5 kg

DRUGS (3)
  1. SANDOSTATIN LAR DEPOT [Suspect]
     Active Substance: OCTREOTIDE ACETATE
  2. SANDOSTATIN LAR DEPOT [Suspect]
     Active Substance: OCTREOTIDE ACETATE
     Indication: GASTROINTESTINAL HAEMORRHAGE
  3. SANDOSTATIN LAR DEPOT [Suspect]
     Active Substance: OCTREOTIDE ACETATE
     Indication: GASTROINTESTINAL ARTERIOVENOUS MALFORMATION
     Dosage: UNK
     Route: 030
     Dates: start: 20190923, end: 20200915

REACTIONS (3)
  - Product use in unapproved indication [Unknown]
  - Chronic hepatic failure [Fatal]
  - Hepatic cirrhosis [Unknown]
